FAERS Safety Report 6700432-2 (Version None)
Quarter: 2010Q2

REPORT INFORMATION
  Report Type: 
  Country: None (occurrence: None)
  Receive Date: 20100428
  Receipt Date: 20100421
  Transmission Date: 20101027
  Serious: Yes (Other)
  Sender: FDA-Public Use
  Company Number: CH-ROCHE-698909

PATIENT
  Age: 75 Week
  Sex: Male

DRUGS (4)
  1. TAMIFLU [Suspect]
     Indication: INFLUENZA
     Route: 048
     Dates: start: 20091119, end: 20091123
  2. PARACETAMOL [Concomitant]
     Dosage: SHORT TERM
  3. FLUIMUCIL [Concomitant]
     Dosage: SHORT TERM
     Route: 048
  4. PECTO-BABY [Concomitant]
     Dosage: SHORT TERM

REACTIONS (2)
  - HEADACHE [None]
  - NIGHTMARE [None]
